FAERS Safety Report 11198941 (Version 12)
Quarter: 2017Q1

REPORT INFORMATION
  Report Type: Report from Study
  Country: AU (occurrence: AU)
  Receive Date: 20150618
  Receipt Date: 20170301
  Transmission Date: 20170428
  Serious: Yes (Hospitalization, Other)
  Sender: FDA-Public Use
  Company Number: AU-SA-2015SA085176

PATIENT
  Age: 56 Year
  Sex: Male

DRUGS (9)
  1. SOTALOL. [Concomitant]
     Active Substance: SOTALOL
  2. FABRAZYME [Suspect]
     Active Substance: AGALSIDASE BETA
     Indication: FABRY^S DISEASE
     Dosage: DOSE-90 MG FORTNIGHTLY IN 250 ML N/SALINE OVER 2 HOURS
     Route: 041
     Dates: start: 20160527
  3. FABRAZYME [Suspect]
     Active Substance: AGALSIDASE BETA
     Indication: FABRY^S DISEASE
     Dosage: DOSE-90 MG FORTNIGHTLY IN 250 ML N/SALINE OVER 2 HOURS
     Route: 041
     Dates: start: 20160527
  4. FABRAZYME [Suspect]
     Active Substance: AGALSIDASE BETA
     Indication: FABRY^S DISEASE
     Dosage: DOSE-90 MG FORTNIGHTLY IN 250 ML N/SALINE OVER 2 HOURS
     Route: 041
     Dates: start: 2006
  5. FABRAZYME [Suspect]
     Active Substance: AGALSIDASE BETA
     Indication: FABRY^S DISEASE
     Dosage: DOSE-90 MG FORTNIGHTLY IN 250 ML N/SALINE OVER 2 HOURS
     Route: 041
     Dates: start: 2006
  6. FABRAZYME [Suspect]
     Active Substance: AGALSIDASE BETA
     Indication: FABRY^S DISEASE
     Route: 041
     Dates: start: 20170217
  7. FABRAZYME [Suspect]
     Active Substance: AGALSIDASE BETA
     Indication: FABRY^S DISEASE
     Route: 041
     Dates: start: 20170217
  8. PANADOL [Concomitant]
     Active Substance: ACETAMINOPHEN
  9. FABRAZYME [Suspect]
     Active Substance: AGALSIDASE BETA
     Indication: FABRY^S DISEASE
     Dosage: DOSE-90 MG FORTNIGHTLY IN 250 ML N/SALINE OVER 2 HOURS
     Route: 041
     Dates: start: 2006

REACTIONS (20)
  - Arrhythmia [Recovered/Resolved with Sequelae]
  - Malaise [Unknown]
  - Cerebrovascular accident [Unknown]
  - Tenderness [Recovered/Resolved]
  - Blood creatinine increased [Unknown]
  - Dysarthria [Unknown]
  - Pain [Not Recovered/Not Resolved]
  - Transient ischaemic attack [Unknown]
  - Localised infection [Recovering/Resolving]
  - Abscess limb [Recovering/Resolving]
  - Decubitus ulcer [Recovering/Resolving]
  - Wound complication [Unknown]
  - Cellulitis [Recovered/Resolved]
  - Oedema peripheral [Recovered/Resolved]
  - Memory impairment [Unknown]
  - Skin ulcer [Recovering/Resolving]
  - Back pain [Not Recovered/Not Resolved]
  - Lethargy [Not Recovered/Not Resolved]
  - Diarrhoea [Not Recovered/Not Resolved]
  - Nasopharyngitis [Recovering/Resolving]

NARRATIVE: CASE EVENT DATE: 20150603
